FAERS Safety Report 9255525 (Version 1)
Quarter: 2013Q2

REPORT INFORMATION
  Report Type: Spontaneous
  Country: FR (occurrence: FR)
  Receive Date: 20130425
  Receipt Date: 20130425
  Transmission Date: 20140414
  Serious: Yes (Hospitalization, Other)
  Sender: FDA-Public Use
  Company Number: FR-ALLERGAN-1305865US

PATIENT
  Age: 77 Year
  Sex: Male

DRUGS (5)
  1. OZURDEX [Suspect]
     Indication: RETINAL VEIN OCCLUSION
     Dosage: 0.7 MG, SINGLE
     Route: 031
     Dates: start: 20120926, end: 20120926
  2. METFORMIN [Concomitant]
  3. CHONDROSULF [Concomitant]
  4. INEXIUM [Concomitant]
  5. DOLIPRANE [Concomitant]

REACTIONS (5)
  - Visual acuity reduced [Recovering/Resolving]
  - Inflammation [Recovering/Resolving]
  - Cystoid macular oedema [Unknown]
  - Endophthalmitis [Recovering/Resolving]
  - Cataract [Unknown]
